FAERS Safety Report 17395969 (Version 1)
Quarter: 2020Q1

REPORT INFORMATION
  Report Type: Spontaneous
  Country: US (occurrence: US)
  Receive Date: 20200207
  Receipt Date: 20200207
  Transmission Date: 20200409
  Serious: Yes (Hospitalization)
  Sender: FDA-Public Use
  Company Number: None

PATIENT
  Age: 59 Year

DRUGS (1)
  1. TESTOPEL [Suspect]
     Active Substance: TESTOSTERONE
     Indication: TESTICULAR HYPERFUNCTION
     Dosage: ?          OTHER FREQUENCY:EVERY 4 MONTHS;?
     Route: 058

REACTIONS (1)
  - Neoplasm malignant [None]
